FAERS Safety Report 11857318 (Version 1)
Quarter: 2015Q4

REPORT INFORMATION
  Report Type: Spontaneous
  Country: FR (occurrence: FR)
  Receive Date: 20151221
  Receipt Date: 20151221
  Transmission Date: 20160305
  Serious: Yes (Life-Threatening, Hospitalization, Other)
  Sender: FDA-Public Use
  Company Number: FR-TEVA-618303ISR

PATIENT
  Age: 73 Year
  Sex: Male

DRUGS (20)
  1. ENDOXAN [Suspect]
     Active Substance: CYCLOPHOSPHAMIDE
     Dosage: 2 COURSES OF R-CHOP
     Route: 042
     Dates: start: 20150821, end: 20150911
  2. SPASFON [Concomitant]
     Active Substance: PHLOROGLUCINOL
     Dosage: 3 DOSAGE FORMS DAILY; PRESCRIBED AFTER EACH COURSE OF CHEMOTHERAPY
     Dates: start: 201508
  3. CORTANCYL [Suspect]
     Active Substance: PREDNISONE
     Dosage: 2 COURSES OF R-CHOP, FROM DAY 1 TO DAY 5 OF THE COURSE
     Route: 048
     Dates: start: 20150821, end: 20150911
  4. MONOPROST [Concomitant]
     Active Substance: LATANOPROST
  5. PRIMPERAN [Concomitant]
     Active Substance: METOCLOPRAMIDE HYDROCHLORIDE
     Indication: NAUSEA
     Dosage: 3 DOSAGE FORMS DAILY; IN CASE OF NAUSEA, PRESCRIBED AFTER EACH COURSE OF CHEMOTHERAPY
     Dates: start: 201508
  6. AUGMENTIN 1 G/125 MG [Concomitant]
     Dates: start: 201508, end: 20150829
  7. VINCRISTINE HOSPIRA 2MG/2ML [Suspect]
     Active Substance: VINCRISTINE
     Dosage: 2 COURSES OF R-CHOP
     Route: 042
     Dates: start: 20150821, end: 20150911
  8. COSOPT [Concomitant]
     Active Substance: DORZOLAMIDE HYDROCHLORIDE\TIMOLOL MALEATE
  9. MOVICOL [Concomitant]
     Active Substance: POLYETHYLENE GLYCOL 3350\POTASSIUM CHLORIDE\SODIUM BICARBONATE\SODIUM CHLORIDE
     Indication: CONSTIPATION
     Dosage: IN CASE OF CONSTIPATION, PRESCRIBED AFTER EACH COURSE OF CHEMOTHERAPY
     Dates: start: 201508
  10. DOXORUBICINE TEVA [Suspect]
     Active Substance: DOXORUBICIN
     Dosage: 2 COURSES OF R-CHOP
     Route: 042
     Dates: start: 20150821, end: 20150911
  11. CORTANCYL [Suspect]
     Active Substance: PREDNISONE
     Dosage: 1 COURSE OF COP
     Route: 048
     Dates: start: 20150814, end: 20150814
  12. ENDOXAN [Suspect]
     Active Substance: CYCLOPHOSPHAMIDE
     Dosage: 1 COURSE OF COP
     Route: 042
     Dates: start: 20150814, end: 20150814
  13. VINCRISTINE HOSPIRA 2MG/2ML [Suspect]
     Active Substance: VINCRISTINE
     Dosage: 1 COURSE OF COP
     Route: 042
     Dates: start: 20150814, end: 20150814
  14. COVERAM 5 MG/5MG [Concomitant]
     Dosage: 2 DOSAGE FORMS DAILY; 1 DF= PERINDOPRIL 5 MG + AMLODIPINE 5 MG
  15. OROZAMUDOL 50 MG [Concomitant]
     Indication: PAIN
     Dosage: IN CASE OF PAIN, PRESCRIBED AFTER EACH COURSE OF CHEMOTHERAPY
  16. ZELITREX [Concomitant]
     Active Substance: VALACYCLOVIR HYDROCHLORIDE
     Dosage: 1000 MILLIGRAM DAILY; PRESCRIBED AFTER EACH COURSE OF CHEMOTHERAPY
     Dates: start: 201508
  17. GRANOCYTE [Concomitant]
     Active Substance: LENOGRASTIM
     Dosage: 34 MU DAILY; PRESCRIBED AFTER EACH COURSE OF CHEMOTHERAPY
     Dates: start: 201508
  18. AUGMENTIN 1 G/125 MG [Concomitant]
     Dates: start: 201509
  19. MABTHERA [Suspect]
     Active Substance: RITUXIMAB
     Dosage: 2 COURSES OF R-CHOP
     Route: 058
     Dates: start: 20150821, end: 20150911
  20. ZYLORIC [Concomitant]
     Active Substance: ALLOPURINOL
     Dosage: 100 MILLIGRAM DAILY; PRESCRIBED AFTER EACH COURSE OF CHEMOTHERAPY
     Dates: start: 201508

REACTIONS (5)
  - Lung disorder [Recovering/Resolving]
  - Lymphopenia [Not Recovered/Not Resolved]
  - Pneumocystis jirovecii pneumonia [Recovering/Resolving]
  - Acute respiratory distress syndrome [Recovered/Resolved]
  - Agranulocytosis [Unknown]

NARRATIVE: CASE EVENT DATE: 20151003
